FAERS Safety Report 12892751 (Version 2)
Quarter: 2016Q4

REPORT INFORMATION
  Report Type: Report from Study
  Country: IT (occurrence: IT)
  Receive Date: 20161028
  Receipt Date: 20161117
  Transmission Date: 20170207
  Serious: Yes (Other)
  Sender: FDA-Public Use
  Company Number: IT-TEVA-706732ACC

PATIENT
  Age: 42 Year
  Sex: Male

DRUGS (12)
  1. DEPAKIN - SANOFI S.P.A. [Suspect]
     Active Substance: VALPROATE SODIUM
     Indication: PRODUCT USED FOR UNKNOWN INDICATION
     Dosage: 2000 MILLIGRAM DAILY;
     Route: 048
  2. ENTUMIN - LABORATOIRES JUVISE PHARMACEUTICALS [Suspect]
     Active Substance: CLOTHIAPINE
     Indication: PRODUCT USED FOR UNKNOWN INDICATION
  3. OMEPRAZOLE. [Concomitant]
     Active Substance: OMEPRAZOLE
     Indication: PRODUCT USED FOR UNKNOWN INDICATION
  4. MODITEN DEPOT - 25 MG/1 ML SOLUZIONE INIETTABILE A RILASCIO PROLUNGATO [Suspect]
     Active Substance: FLUPHENAZINE HYDROCHLORIDE
     Indication: PRODUCT USED FOR UNKNOWN INDICATION
     Dosage: 2 DF CYCLICAL
     Route: 030
  5. SIMVASTATIN. [Concomitant]
     Active Substance: SIMVASTATIN
     Indication: PRODUCT USED FOR UNKNOWN INDICATION
  6. LARGACTIL - 100 MG COMPRESSE RIVESTITE CON FILM - TEOFARMA S.R.L. [Suspect]
     Active Substance: CHLORPROMAZINE HYDROCHLORIDE
     Indication: PRODUCT USED FOR UNKNOWN INDICATION
     Dosage: 3 DOSAGE FORMS DAILY;
     Route: 048
  7. FENOFIBRATE. [Concomitant]
     Active Substance: FENOFIBRATE
     Indication: PRODUCT USED FOR UNKNOWN INDICATION
     Dosage: 200 MG
  8. HALDOL [Suspect]
     Active Substance: HALOPERIDOL
     Indication: PRODUCT USED FOR UNKNOWN INDICATION
     Dosage: 40 GTT DAILY;
     Route: 048
  9. RAMIPRIL. [Concomitant]
     Active Substance: RAMIPRIL
     Indication: PRODUCT USED FOR UNKNOWN INDICATION
     Dosage: 5 MG
     Route: 048
  10. DIAZEPAM. [Suspect]
     Active Substance: DIAZEPAM
     Indication: PRODUCT USED FOR UNKNOWN INDICATION
     Dosage: 120 GTT DAILY;
     Route: 048
  11. AKINETON [Concomitant]
     Active Substance: BIPERIDEN HYDROCHLORIDE
     Indication: PRODUCT USED FOR UNKNOWN INDICATION
  12. LASIX [Concomitant]
     Active Substance: FUROSEMIDE
     Indication: PRODUCT USED FOR UNKNOWN INDICATION
     Dosage: 2 DF
     Route: 048

REACTIONS (1)
  - Sopor [Recovering/Resolving]

NARRATIVE: CASE EVENT DATE: 20160929
